FAERS Safety Report 22287229 (Version 1)
Quarter: 2023Q2

REPORT INFORMATION
  Report Type: Spontaneous
  Country: US (occurrence: US)
  Receive Date: 20230505
  Receipt Date: 20230505
  Transmission Date: 20230721
  Serious: No
  Sender: FDA-Public Use
  Company Number: US-GSK-US2023AMR061584

PATIENT
  Sex: Male

DRUGS (1)
  1. ALBUTEROL SULFATE [Suspect]
     Active Substance: ALBUTEROL SULFATE
     Indication: Asthma
     Dosage: 3 PUFF(S), AS NEEDED, 90 MCG, 18G/200 METERED

REACTIONS (5)
  - Wrong technique in device usage process [Unknown]
  - Expired product administered [Unknown]
  - Product dose omission issue [Unknown]
  - Product prescribing issue [Unknown]
  - Product use issue [Unknown]
